FAERS Safety Report 5838195-5 (Version None)
Quarter: 2008Q3

REPORT INFORMATION
  Report Type: 
  Country: None (occurrence: None)
  Receive Date: 20080806
  Receipt Date: 20080801
  Transmission Date: 20090109
  Serious: Yes (Other)
  Sender: FDA-Public Use
  Company Number: 2008SP009779

PATIENT
  Age: 50 Year
  Sex: Male

DRUGS (6)
  1. PEG-INTRON [Suspect]
     Indication: HEPATITIS C
     Dosage: 96 MCG; ; SC
     Route: 058
     Dates: start: 20080222
  2. RIBAVIRIN [Suspect]
     Indication: HEPATITIS C
     Dosage: 1000 MG; QD; PO
     Route: 048
     Dates: start: 20080222
  3. PHENERGAN HCL [Concomitant]
  4. FOLIC ACID [Concomitant]
  5. CELEXA [Concomitant]
  6. TRAZODONE HCL [Concomitant]

REACTIONS (12)
  - DEHYDRATION [None]
  - DYSPHAGIA [None]
  - EAR PAIN [None]
  - FALL [None]
  - FEELING ABNORMAL [None]
  - HAEMOPTYSIS [None]
  - HEADACHE [None]
  - HYPOPHAGIA [None]
  - MALAISE [None]
  - OROPHARYNGEAL PAIN [None]
  - SKELETAL INJURY [None]
  - SYNCOPE [None]
